FAERS Safety Report 22044181 (Version 1)
Quarter: 2023Q1

REPORT INFORMATION
  Report Type: Spontaneous
  Country: US (occurrence: None)
  Receive Date: 20230227
  Receipt Date: 20230227
  Transmission Date: 20230418
  Serious: No
  Sender: FDA-Public Use
  Company Number: None

PATIENT
  Age: 69 Year
  Sex: Female
  Weight: 70.31 kg

DRUGS (12)
  1. CAPECITABINE [Suspect]
     Active Substance: CAPECITABINE
     Indication: Neoplasm malignant
     Dosage: OTHER FREQUENCY : EVERY12HR;?
     Route: 048
  2. ACETAMINOPHEN [Concomitant]
     Active Substance: ACETAMINOPHEN
  3. ALPRAZOLAM [Concomitant]
  4. B COMPLEX [Concomitant]
  5. CITALPRAM [Concomitant]
  6. DOCUSATE SODIUM [Concomitant]
  7. NORCO [Concomitant]
  8. CALCIUM 600 +D [Concomitant]
  9. LOSARTAN [Concomitant]
  10. METOPROLOL [Concomitant]
  11. PROCHLORPERAZINE [Concomitant]
  12. TEMAZEPAM [Concomitant]

REACTIONS (2)
  - Malignant neoplasm progression [None]
  - Therapy cessation [None]
